FAERS Safety Report 24972763 (Version 1)
Quarter: 2025Q1

REPORT INFORMATION
  Report Type: Spontaneous
  Country: US (occurrence: US)
  Receive Date: 20250215
  Receipt Date: 20250215
  Transmission Date: 20250409
  Serious: Yes (Death, Hospitalization, Other)
  Sender: AMGEN
  Company Number: US-AMGEN-USASP2025027169

PATIENT
  Age: 84 Year
  Sex: Female

DRUGS (1)
  1. TAVNEOS [Suspect]
     Active Substance: AVACOPAN
     Indication: Product used for unknown indication
     Dosage: 30 MILLIGRAM, BID/TWICE DAILY
     Route: 065
     Dates: start: 202401

REACTIONS (3)
  - Pulmonary vasculitis [Fatal]
  - Influenza [Recovering/Resolving]
  - Pneumonia [Recovering/Resolving]
